FAERS Safety Report 5751867-6 (Version None)
Quarter: 2008Q2

REPORT INFORMATION
  Report Type: 
  Country: None (occurrence: None)
  Receive Date: 20080527
  Receipt Date: 20080509
  Transmission Date: 20081010
  Serious: Yes (Other)
  Sender: FDA-Public Use
  Company Number: 2008AL004449

PATIENT
  Sex: Male

DRUGS (1)
  1. DIGOXIN [Suspect]
     Dosage: .25MG

REACTIONS (3)
  - BRADYCARDIA [None]
  - CARDIAC DISORDER [None]
  - DIZZINESS [None]
